FAERS Safety Report 21770102 (Version 1)
Quarter: 2022Q4

REPORT INFORMATION
  Report Type: Report from Study
  Country: US (occurrence: US)
  Receive Date: 20221223
  Receipt Date: 20221223
  Transmission Date: 20230112
  Serious: No
  Sender: FDA-Public Use
  Company Number: US-ABBVIE-4199348

PATIENT
  Sex: Male

DRUGS (1)
  1. RINVOQ [Suspect]
     Active Substance: UPADACITINIB
     Indication: Rheumatoid arthritis
     Route: 048
     Dates: start: 20220928

REACTIONS (5)
  - Condition aggravated [Unknown]
  - Muscle spasms [Unknown]
  - Joint swelling [Unknown]
  - Temporomandibular joint syndrome [Unknown]
  - Erythema [Unknown]

NARRATIVE: CASE EVENT DATE: 20220101
